FAERS Safety Report 7563689-4 (Version None)
Quarter: 2011Q2

REPORT INFORMATION
  Report Type: 
  Country: None (occurrence: None)
  Receive Date: 20110622
  Receipt Date: 20110610
  Transmission Date: 20111010
  Serious: Yes (Death, Hospitalization)
  Sender: FDA-Public Use
  Company Number: DE-ROCHE-784523

PATIENT
  Sex: Female
  Weight: 80 kg

DRUGS (1)
  1. XELODA [Suspect]
     Dosage: SECOND CYCLE STARTED ON 28-FEB-2011
     Route: 048
     Dates: end: 20110309

REACTIONS (5)
  - SUDDEN CARDIAC DEATH [None]
  - GENERAL PHYSICAL HEALTH DETERIORATION [None]
  - ACUTE PRERENAL FAILURE [None]
  - DIARRHOEA [None]
  - VENTRICULAR FIBRILLATION [None]
